FAERS Safety Report 15881055 (Version 1)
Quarter: 2019Q1

REPORT INFORMATION
  Report Type: Spontaneous
  Country: HN (occurrence: HN)
  Receive Date: 20190128
  Receipt Date: 20190128
  Transmission Date: 20190417
  Serious: Yes (Other)
  Sender: FDA-Public Use
  Company Number: HN-SA-2019SA021521

PATIENT
  Age: 16 Year
  Sex: Male

DRUGS (2)
  1. PRIMAQUINE [Suspect]
     Active Substance: PRIMAQUINE PHOSPHATE
     Indication: PLASMODIUM VIVAX INFECTION
     Dosage: 30 MG, QD
  2. QUINIDINE [Suspect]
     Active Substance: QUINIDINE
     Indication: MALARIA
     Route: 042

REACTIONS (9)
  - Renal failure [Unknown]
  - Haemolysis [Unknown]
  - Melaena [Unknown]
  - Hepatosplenomegaly [Unknown]
  - Jaundice [Unknown]
  - Vomiting [Unknown]
  - Respiratory distress [Unknown]
  - Haemoglobinuria [Unknown]
  - Anaemia [Unknown]
